FAERS Safety Report 6602142-9 (Version None)
Quarter: 2010Q1

REPORT INFORMATION
  Report Type: 
  Country: None (occurrence: None)
  Receive Date: 20100225
  Receipt Date: 20100223
  Transmission Date: 20100710
  Serious: Yes (Death, Life-Threatening, Hospitalization, Other)
  Sender: FDA-Public Use
  Company Number: PHEH2010US01745

PATIENT
  Age: 61 Year
  Sex: Male

DRUGS (10)
  1. FANAPT [Suspect]
     Indication: DEPRESSION
     Dosage: 1 MG, BID
     Route: 048
     Dates: start: 20100127, end: 20100202
  2. FANAPT [Suspect]
     Indication: ABNORMAL BEHAVIOUR
  3. LEXAPRO [Concomitant]
     Indication: DEPRESSION
     Dosage: 10 MG, DAILY
     Dates: start: 20091007
  4. LEXAPRO [Concomitant]
     Dosage: 20 MG, DAILY
     Dates: start: 20091012
  5. SONATA [Concomitant]
     Dosage: 5 MG, QHS
  6. CLOPIDOGREL [Concomitant]
  7. SIMVASTATIN [Concomitant]
  8. LISINOPRIL [Concomitant]
  9. FAMOTIDINE [Concomitant]
  10. METOPROLOL TARTRATE [Concomitant]

REACTIONS (6)
  - BRAIN DEATH [None]
  - COMA [None]
  - CYANOSIS [None]
  - DEATH [None]
  - LOSS OF CONSCIOUSNESS [None]
  - TACHYCARDIA [None]
